FAERS Safety Report 6143420-X (Version None)
Quarter: 2009Q2

REPORT INFORMATION
  Report Type: 
  Country: None (occurrence: None)
  Receive Date: 20090403
  Receipt Date: 20090324
  Transmission Date: 20091009
  Serious: Yes (Hospitalization, Other)
  Sender: FDA-Public Use
  Company Number: KR-AVENTIS-200911574EU

PATIENT
  Age: 82 Year
  Sex: Male
  Weight: 50.5 kg

DRUGS (27)
  1. LASIX [Suspect]
     Dosage: DOSE: UNK
     Dates: start: 20081018, end: 20081018
  2. LASIX [Suspect]
     Dosage: DOSE: UNK
     Dates: start: 20081020, end: 20081020
  3. LASIX [Suspect]
     Dosage: DOSE: UNK
     Dates: start: 20081023, end: 20081023
  4. LASIX [Suspect]
     Dosage: DOSE: UNK
     Dates: start: 20081029, end: 20081029
  5. LASIX [Suspect]
     Dosage: DOSE: UNK
     Dates: start: 20081102, end: 20081102
  6. LASIX [Suspect]
     Dosage: DOSE: UNK
     Dates: start: 20081115, end: 20081115
  7. LASIX [Suspect]
     Dosage: DOSE: UNK
     Dates: start: 20081118
  8. MEROPENEM [Suspect]
     Indication: PNEUMONIA
     Dosage: DOSE: UNK
     Dates: start: 20080910, end: 20081023
  9. CODE UNBROKEN [Concomitant]
     Route: 058
     Dates: start: 20081018, end: 20081030
  10. MUCOPECT [Concomitant]
     Dates: start: 20080812
  11. LANSTON [Concomitant]
     Dates: start: 20081004, end: 20081119
  12. MACPERAN [Concomitant]
     Dates: start: 20081004, end: 20081013
  13. LAMISIL [Concomitant]
     Dates: start: 20080929, end: 20081015
  14. BIOFLOR [Concomitant]
     Dates: start: 20081004, end: 20081027
  15. PANTOLOC                           /01263201/ [Concomitant]
     Dates: start: 20081015, end: 20081017
  16. PANTOLOC                           /01263201/ [Concomitant]
     Dates: start: 20081120
  17. GANATON [Concomitant]
     Dates: start: 20081021, end: 20081027
  18. MOTILIUM-M [Concomitant]
     Dates: start: 20081028, end: 20081028
  19. NORZYME [Concomitant]
     Dates: start: 20081028, end: 20081118
  20. ATIVAN [Concomitant]
     Dates: start: 20081120
  21. CEFAMEZIN                          /00288502/ [Concomitant]
     Dates: start: 20081110
  22. K-CONTIN [Concomitant]
     Dates: start: 20081113, end: 20081118
  23. ATROVENT [Concomitant]
     Dates: start: 20080812
  24. BACTROBAN [Concomitant]
     Dates: start: 20081016
  25. CONTRACTUBEX                       /02424801/ [Concomitant]
     Dates: start: 20080930
  26. PULMICORT-100 [Concomitant]
     Dates: start: 20081118, end: 20081118
  27. VENTOLIN [Concomitant]
     Dates: start: 20080812

REACTIONS (2)
  - AZOTAEMIA [None]
  - RENAL FAILURE ACUTE [None]
